FAERS Safety Report 20278248 (Version 2)
Quarter: 2025Q2

REPORT INFORMATION
  Report Type: Report from Study
  Country: IT (occurrence: IT)
  Receive Date: 20220103
  Receipt Date: 20250603
  Transmission Date: 20250716
  Serious: Yes (Death, Other)
  Sender: AUROBINDO
  Company Number: IT-GLAXOSMITHKLINE-IT2021GSK256512

PATIENT
  Age: 35 Year
  Sex: Male

DRUGS (4)
  1. ACETAMINOPHEN [Suspect]
     Active Substance: ACETAMINOPHEN
     Indication: Product used for unknown indication
     Route: 065
  2. VALPROATE SODIUM [Suspect]
     Active Substance: VALPROATE SODIUM
     Indication: Product used for unknown indication
     Route: 065
  3. ALCOHOL [Suspect]
     Active Substance: ALCOHOL
     Indication: Product used for unknown indication
     Route: 065
  4. METHADONE HYDROCHLORIDE [Suspect]
     Active Substance: METHADONE HYDROCHLORIDE
     Indication: Product used for unknown indication
     Route: 065

REACTIONS (8)
  - Toxicity to various agents [Fatal]
  - Pulmonary haemorrhage [Unknown]
  - Pneumonia [Unknown]
  - Pulmonary oedema [Unknown]
  - Myocardial oedema [Unknown]
  - Pulmonary congestion [Unknown]
  - Lipomatosis [Unknown]
  - Myocardial fibrosis [Unknown]
